FAERS Safety Report 4358959-7 (Version None)
Quarter: 2004Q2

REPORT INFORMATION
  Report Type: 
  Country: None (occurrence: None)
  Receive Date: 20040517
  Receipt Date: 20040224
  Transmission Date: 20050107
  Serious: Yes (Hospitalization, Disabling)
  Sender: FDA-Public Use
  Company Number: GB-MERCK-0402GBR00239

PATIENT
  Age: 66 Year
  Sex: Female
  Weight: 50 kg

DRUGS (4)
  1. SINGULAIR [Suspect]
     Indication: ASTHMA
     Route: 048
     Dates: start: 19980101, end: 20040223
  2. OMEPRAZOLE [Concomitant]
     Route: 065
  3. SCOPOLAMINE [Concomitant]
     Route: 065
  4. TRAMADOL HYDROCHLORIDE [Concomitant]
     Route: 065

REACTIONS (14)
  - ANXIETY [None]
  - ATAXIA [None]
  - BALANCE DISORDER [None]
  - CEREBRAL ATROPHY [None]
  - CEREBRAL ISCHAEMIA [None]
  - COGNITIVE DISORDER [None]
  - DISTURBANCE IN ATTENTION [None]
  - DYSKINESIA [None]
  - EYE MOVEMENT DISORDER [None]
  - EYELID PTOSIS [None]
  - FALL [None]
  - HYPERREFLEXIA [None]
  - MEMORY IMPAIRMENT [None]
  - TREMOR [None]
